FAERS Safety Report 19489597 (Version 1)
Quarter: 2021Q3

REPORT INFORMATION
  Report Type: Other
  Country: US (occurrence: US)
  Receive Date: 20210704
  Receipt Date: 20210704
  Transmission Date: 20211014
  Serious: Yes (Hospitalization)
  Sender: FDA-Public Use
  Company Number: US-DEXPHARM-20210900

PATIENT
  Age: 48 Hour
  Sex: Female

DRUGS (5)
  1. DEXAMETHASONE. [Suspect]
     Active Substance: DEXAMETHASONE
  2. SELINEXOR [Suspect]
     Active Substance: SELINEXOR
  3. LORAZEPAM. [Concomitant]
     Active Substance: LORAZEPAM
  4. TRIAMCINOLONE [Suspect]
     Active Substance: TRIAMCINOLONE
  5. OLANZAPINE. [Concomitant]
     Active Substance: OLANZAPINE

REACTIONS (2)
  - Substance-induced psychotic disorder [Recovering/Resolving]
  - Drug interaction [Recovering/Resolving]
